FAERS Safety Report 7466437-1 (Version None)
Quarter: 2011Q2

REPORT INFORMATION
  Report Type: 
  Country: None (occurrence: None)
  Receive Date: 20110509
  Receipt Date: 20100722
  Transmission Date: 20111010
  Serious: No
  Sender: FDA-Public Use
  Company Number: US-ALEXION-A201000865

PATIENT
  Sex: Female
  Weight: 55.102 kg

DRUGS (5)
  1. FOLIC ACID [Concomitant]
     Dosage: 1 MG, QD
  2. SOLIRIS [Suspect]
     Indication: PAROXYSMAL NOCTURNAL HAEMOGLOBINURIA
     Dosage: 900 MG, Q2W
     Route: 042
     Dates: start: 20080901
  3. IRON SULFATETHIAMIN COMPOUND TAB [Concomitant]
     Dosage: 325 MG, QD
  4. PRENATAL VITAMINS                  /01549301/ [Concomitant]
     Dosage: UNK
  5. ASPIRIN [Concomitant]
     Indication: THROMBOSIS PROPHYLAXIS
     Dosage: 325 MG, QD

REACTIONS (4)
  - HAEMOLYSIS [None]
  - HEADACHE [None]
  - ABDOMINAL PAIN [None]
  - HYPOAESTHESIA [None]
